FAERS Safety Report 4882731-2 (Version None)
Quarter: 2005Q4

REPORT INFORMATION
  Report Type: 
  Country: None (occurrence: None)
  Receive Date: 20051201
  Receipt Date: 20050918
  Transmission Date: 20060501
  Serious: No
  Sender: FDA-Public Use
  Company Number: 2005PV002210

PATIENT
  Age: 44 Year
  Sex: Female
  Weight: 120.6568 kg

DRUGS (6)
  1. BYETTA [Suspect]
     Indication: DIABETES MELLITUS NON-INSULIN-DEPENDENT
     Dosage: SEE IMAGE
     Route: 058
     Dates: start: 20050811, end: 20050910
  2. BYETTA [Suspect]
     Indication: DIABETES MELLITUS NON-INSULIN-DEPENDENT
     Dosage: SEE IMAGE
     Route: 058
     Dates: start: 20050911
  3. GLUCOPHAGE [Concomitant]
  4. ACCUPRIL [Concomitant]
  5. CARDURA [Concomitant]
  6. VITAMIN [Concomitant]

REACTIONS (4)
  - BLOOD PRESSURE DECREASED [None]
  - DIZZINESS [None]
  - NAUSEA [None]
  - VOMITING [None]
